FAERS Safety Report 6588182-7 (Version None)
Quarter: 2010Q1

REPORT INFORMATION
  Report Type: 
  Country: None (occurrence: None)
  Receive Date: 20100218
  Receipt Date: 20090108
  Transmission Date: 20100710
  Serious: No
  Sender: FDA-Public Use
  Company Number: US-ASTRAZENECA-2009UW00770

PATIENT
  Age: 60 Year
  Sex: Female
  Weight: 56.7 kg

DRUGS (7)
  1. ACCOLATE [Suspect]
     Indication: ASTHMA
     Route: 048
     Dates: start: 20090108
  2. ACCOLATE [Suspect]
     Indication: CHRONIC OBSTRUCTIVE PULMONARY DISEASE
     Route: 048
     Dates: start: 20090108
  3. LISINOPRIL AND HYDROCHLOROTHIAZIDE [Concomitant]
     Route: 048
  4. CLARITIN [Concomitant]
  5. ALBUTEROL [Concomitant]
  6. COLOZAPAM [Concomitant]
     Indication: BLOOD PRESSURE
  7. IBUPROPIUM [Concomitant]

REACTIONS (4)
  - BACK PAIN [None]
  - BLADDER SPASM [None]
  - DYSPNOEA [None]
  - PSYCHOMOTOR HYPERACTIVITY [None]
